FAERS Safety Report 4795254-6 (Version None)
Quarter: 2005Q3

REPORT INFORMATION
  Report Type: 
  Country: None (occurrence: None)
  Receive Date: 20050916
  Receipt Date: 20041119
  Transmission Date: 20060218
  Serious: Yes (Other)
  Sender: FDA-Public Use
  Company Number: US-JNJFOC-20040809033

PATIENT
  Age: 40 Year
  Sex: Female

DRUGS (3)
  1. TOPAMAX [Suspect]
     Indication: PARTIAL SEIZURES
     Dosage: SEE IMAGE
     Route: 048
     Dates: start: 20040801
  2. TOPAMAX [Suspect]
     Indication: PROPHYLAXIS
     Dosage: SEE IMAGE
     Route: 048
     Dates: start: 20040801
  3. TEGRETOL [Concomitant]

REACTIONS (2)
  - ALOPECIA [None]
  - CONVULSION [None]
